FAERS Safety Report 5213875-3 (Version None)
Quarter: 2007Q1

REPORT INFORMATION
  Report Type: 
  Country: None (occurrence: None)
  Receive Date: 20070117
  Receipt Date: 20070109
  Transmission Date: 20070707
  Serious: Yes (Death)
  Sender: FDA-Public Use
  Company Number: 2007-152846-NL

PATIENT
  Age: 64 Year
  Sex: Female
  Weight: 54.5 kg

DRUGS (3)
  1. REMERON [Suspect]
     Indication: DEPRESSION
     Dosage: DF ORAL
     Route: 048
  2. SYNTHROID [Concomitant]
  3. ALBUTEROL [Concomitant]

REACTIONS (4)
  - ASPHYXIA [None]
  - ASPIRATION [None]
  - CHOKING [None]
  - DRUG LEVEL INCREASED [None]
